FAERS Safety Report 8926059 (Version 3)
Quarter: 2013Q1

REPORT INFORMATION
  Report Type: Spontaneous
  Country: CA (occurrence: CA)
  Receive Date: 20121126
  Receipt Date: 20130211
  Transmission Date: 20140127
  Serious: Yes (Disabling, Other)
  Sender: FDA-Public Use
  Company Number: CA-BAYER-2012-118450

PATIENT
  Age: 57 Year
  Sex: Male

DRUGS (1)
  1. ALEVE [Suspect]
     Indication: BACK PAIN
     Dosage: 200 MG, QD
     Dates: start: 20121107

REACTIONS (13)
  - Metastases to liver [None]
  - Metastases to bone [None]
  - Gait disturbance [None]
  - Pain [None]
  - Impaired work ability [None]
  - Pain in extremity [None]
  - Back pain [None]
  - Rash [None]
  - Pruritus [Recovered/Resolved]
  - Swelling [None]
  - Oedema peripheral [Recovered/Resolved]
  - Lip swelling [Recovered/Resolved]
  - Urticaria [Recovering/Resolving]
